FAERS Safety Report 9343127 (Version 3)
Quarter: 2013Q2

REPORT INFORMATION
  Report Type: Report from Study
  Country: DE (occurrence: DE)
  Receive Date: 20130611
  Receipt Date: 20130627
  Transmission Date: 20140414
  Serious: Yes (Hospitalization)
  Sender: FDA-Public Use
  Company Number: DE-SANOFI-AVENTIS-2013SA058689

PATIENT
  Age: 74 Year
  Sex: Male
  Weight: 80 kg

DRUGS (17)
  1. JEVTANA [Suspect]
     Indication: HORMONE-REFRACTORY PROSTATE CANCER
     Route: 051
     Dates: start: 20130502, end: 20130502
  2. JEVTANA [Suspect]
     Indication: HORMONE-REFRACTORY PROSTATE CANCER
     Route: 051
     Dates: start: 20130208, end: 20130208
  3. CODEINE [Concomitant]
  4. CLARITHROMYCIN [Concomitant]
     Dates: start: 20130502, end: 20130502
  5. GRANISETRON [Concomitant]
  6. DEXAMETHASONE [Concomitant]
  7. PREDNISOLON [Concomitant]
  8. CLEMASTINE [Concomitant]
  9. FILGRASTIM [Concomitant]
     Dosage: 48 MIO/0.8ML
  10. SIMVASTATIN [Concomitant]
     Indication: LIPIDS INCREASED
     Route: 048
  11. ACETYLSALICYLIC ACID [Concomitant]
     Indication: ATRIAL FIBRILLATION
     Route: 048
  12. ACETYLSALICYLIC ACID [Concomitant]
     Indication: HYPERTENSION
     Route: 048
  13. RAMIPRIL/HYDROCHLOROTHIAZIDE [Concomitant]
     Indication: ATRIAL FIBRILLATION
     Dosage: DOSAGE: 2.5/12.5 MG
     Route: 048
  14. RAMIPRIL/HYDROCHLOROTHIAZIDE [Concomitant]
     Indication: HYPERTENSION
     Dosage: DOSAGE: 2.5/12.5 MG
     Route: 048
  15. METOPROLOL [Concomitant]
     Indication: ATRIAL FIBRILLATION
     Route: 048
  16. METOPROLOL [Concomitant]
     Indication: HYPERTENSION
     Route: 048
  17. ZOMETA [Concomitant]

REACTIONS (3)
  - Bronchopneumonia [Recovered/Resolved]
  - Cough [Recovered/Resolved]
  - Leukocytosis [Recovered/Resolved]
